FAERS Safety Report 15187550 (Version 2)
Quarter: 2018Q3

REPORT INFORMATION
  Report Type: Spontaneous
  Country: TH (occurrence: TH)
  Receive Date: 20180723
  Receipt Date: 20180808
  Transmission Date: 20181010
  Serious: Yes (Death, Hospitalization, Other)
  Sender: FDA-Public Use
  Company Number: TH-BAXTER-2018BAX019789

PATIENT
  Age: 71 Year
  Sex: Female

DRUGS (1)
  1. DIANEAL LOW CALCIUM PERITONEAL DIALYSIS SOLUTION WITH DEXTROSE [Suspect]
     Active Substance: CALCIUM CHLORIDE\DEXTROSE\MAGNESIUM CHLORIDE\SODIUM CHLORIDE\SODIUM LACTATE
     Indication: PERITONEAL DIALYSIS
     Route: 033
     Dates: start: 20140610, end: 20180628

REACTIONS (5)
  - Sepsis [Fatal]
  - Peritonitis [Recovering/Resolving]
  - Fungal peritonitis [Fatal]
  - Malnutrition [Unknown]
  - Fluid overload [Unknown]

NARRATIVE: CASE EVENT DATE: 201806
